FAERS Safety Report 16681957 (Version 1)
Quarter: 2019Q3

REPORT INFORMATION
  Report Type: Report from Study
  Country: US (occurrence: US)
  Receive Date: 20190808
  Receipt Date: 20190808
  Transmission Date: 20191004
  Serious: Yes (Hospitalization, Other)
  Sender: FDA-Public Use
  Company Number: US-JNJFOC-20190806898

PATIENT
  Age: 91 Year
  Sex: Male

DRUGS (1)
  1. IMBRUVICA [Suspect]
     Active Substance: IBRUTINIB
     Indication: CHRONIC LYMPHOCYTIC LEUKAEMIA
     Dosage: 420 MG, QD
     Route: 048
     Dates: start: 20190417

REACTIONS (7)
  - Blood sodium decreased [Unknown]
  - Asthenia [Unknown]
  - Haematoma [Recovering/Resolving]
  - Cerebral haemorrhage [Recovering/Resolving]
  - Thyroid disorder [Unknown]
  - Fall [Recovering/Resolving]
  - Urinary tract infection [Unknown]

NARRATIVE: CASE EVENT DATE: 201907
